FAERS Safety Report 15745889 (Version 1)
Quarter: 2018Q4

REPORT INFORMATION
  Report Type: Spontaneous
  Country: GB (occurrence: GB)
  Receive Date: 20181220
  Receipt Date: 20181220
  Transmission Date: 20190205
  Serious: Yes (Death, Hospitalization)
  Sender: FDA-Public Use
  Company Number: GB-TEVA-2018-GB-988981

PATIENT
  Age: 62 Year
  Sex: Female

DRUGS (2)
  1. CISPLATIN. [Suspect]
     Active Substance: CISPLATIN
     Indication: NON-SMALL CELL LUNG CANCER STAGE I
     Dosage: 80 MG/M2, UNK
     Route: 042
  2. VINORELBINE [Suspect]
     Active Substance: VINORELBINE\VINORELBINE TARTRATE
     Indication: NON-SMALL CELL LUNG CANCER STAGE I
     Dosage: 30 MG/M2, CYCLICAL
     Route: 042

REACTIONS (5)
  - Neutropenic sepsis [Fatal]
  - Rectal haemorrhage [Unknown]
  - Chest pain [Unknown]
  - Pneumonia [Fatal]
  - Malaise [Unknown]
